FAERS Safety Report 9390976 (Version 1)
Quarter: 2013Q3

REPORT INFORMATION
  Report Type: Spontaneous
  Country: FR (occurrence: None)
  Receive Date: 20130705
  Receipt Date: 20130705
  Transmission Date: 20140515
  Serious: No
  Sender: FDA-Public Use
  Company Number: None

PATIENT
  Age: 52 Year
  Sex: Male
  Weight: 92 kg

DRUGS (1)
  1. IRBESARTAN [Suspect]
     Indication: HYPERTENSION
     Route: 048
     Dates: start: 20060101, end: 20130704

REACTIONS (6)
  - Gastric ulcer [None]
  - Gastritis [None]
  - Diverticulitis [None]
  - Diarrhoea [None]
  - Abdominal pain [None]
  - Muscle spasms [None]
